FAERS Safety Report 4283501-9 (Version None)
Quarter: 2004Q1

REPORT INFORMATION
  Report Type: 
  Country: None (occurrence: None)
  Receive Date: 20040202
  Receipt Date: 20030612
  Transmission Date: 20041129
  Serious: No
  Sender: FDA-Public Use
  Company Number: US-BRISTOL-MYERS SQUIBB COMPANY-12300091

PATIENT
  Sex: Male

DRUGS (3)
  1. ULTRAVATE [Suspect]
     Indication: PRURITUS
     Route: 061
  2. ALLEGRA [Concomitant]
  3. LUXIQ [Concomitant]

REACTIONS (1)
  - DRUG INEFFECTIVE [None]
